FAERS Safety Report 26098895 (Version 1)
Quarter: 2025Q4

REPORT INFORMATION
  Report Type: Spontaneous
  Country: EU (occurrence: EU)
  Receive Date: 20251127
  Receipt Date: 20251127
  Transmission Date: 20260118
  Serious: No
  Sender: ALKEM
  Company Number: None

PATIENT
  Age: 6 Decade
  Sex: Male

DRUGS (3)
  1. MYCOPHENOLATE MOFETIL [Suspect]
     Active Substance: MYCOPHENOLATE MOFETIL
     Indication: Skin fibrosis
     Dosage: 250 MILLIGRAM, BID
     Route: 065
  2. BOSENTAN [Concomitant]
     Active Substance: BOSENTAN
     Indication: Prophylaxis
     Dosage: UNK
     Route: 048
  3. PREDNISOLONE [Concomitant]
     Active Substance: PREDNISOLONE
     Indication: Vasculitis
     Dosage: UNK
     Route: 048

REACTIONS (1)
  - Gastrointestinal disorder [Unknown]
